FAERS Safety Report 5602116-0 (Version None)
Quarter: 2008Q1

REPORT INFORMATION
  Report Type: 
  Country: None (occurrence: None)
  Receive Date: 20080125
  Receipt Date: 20080122
  Transmission Date: 20080703
  Serious: Yes (Life-Threatening)
  Sender: FDA-Public Use
  Company Number: PHBS2008IT01196

PATIENT
  Age: 24 Year
  Sex: Male

DRUGS (1)
  1. TORECAN [Suspect]
     Indication: VERTIGO
     Dosage: 6.5 MG, ONCE/SINGLE
     Route: 048
     Dates: start: 20080116, end: 20080116

REACTIONS (5)
  - DYSARTHRIA [None]
  - DYSPNOEA [None]
  - LARYNGEAL OEDEMA [None]
  - LIP OEDEMA [None]
  - TONGUE OEDEMA [None]
